FAERS Safety Report 21773034 (Version 2)
Quarter: 2022Q4

REPORT INFORMATION
  Report Type: Spontaneous
  Country: CN (occurrence: CN)
  Receive Date: 20221223
  Receipt Date: 20221230
  Transmission Date: 20230113
  Serious: Yes (Hospitalization, Other)
  Sender: FDA-Public Use
  Company Number: CN-SA-SAC20221222000957

PATIENT
  Age: 4 Month
  Sex: Male

DRUGS (7)
  1. RIFAMPIN [Suspect]
     Active Substance: RIFAMPIN
     Indication: Prophylaxis
     Dosage: UNK
  2. LEVOFLOXACIN [Suspect]
     Active Substance: LEVOFLOXACIN
     Indication: Prophylaxis
     Dosage: UNK
  3. LINEZOLID [Suspect]
     Active Substance: LINEZOLID
     Indication: Prophylaxis
     Dosage: UNK
  4. MEROPENEM [Suspect]
     Active Substance: MEROPENEM
     Indication: Prophylaxis
     Dosage: UNK
  5. ISONIAZID [Suspect]
     Active Substance: ISONIAZID
     Indication: Prophylaxis
     Dosage: UNK
  6. ETHAMBUTOL [Suspect]
     Active Substance: ETHAMBUTOL HYDROCHLORIDE
     Indication: Prophylaxis
  7. CLARITHROMYCIN [Suspect]
     Active Substance: CLARITHROMYCIN
     Indication: Prophylaxis
     Dosage: UNK

REACTIONS (10)
  - Multiple organ dysfunction syndrome [Unknown]
  - Hypersplenism [Unknown]
  - Haemophagocytic lymphohistiocytosis [Unknown]
  - Septic shock [Unknown]
  - Immune reconstitution inflammatory syndrome [Unknown]
  - Hepatic vascular disorder [Unknown]
  - Acute graft versus host disease [Unknown]
  - Condition aggravated [Unknown]
  - Splenic infection [Unknown]
  - Disseminated intravascular coagulation [Unknown]
